FAERS Safety Report 11010383 (Version 1)
Quarter: 2015Q2

REPORT INFORMATION
  Report Type: Spontaneous
  Country: PT (occurrence: PT)
  Receive Date: 20150410
  Receipt Date: 20150410
  Transmission Date: 20150821
  Serious: Yes (Other)
  Sender: FDA-Public Use
  Company Number: PT-GLAXOSMITHKLINE-PT2015GSK045427

PATIENT
  Age: 43 Year
  Sex: Female

DRUGS (8)
  1. ELONTRIL [Suspect]
     Active Substance: BUPROPION HYDROCHLORIDE
     Indication: DEPRESSION
     Dosage: 300 MG, QD
     Route: 048
     Dates: start: 201410
  2. ADT (AMITRIPTYLINE CHLORHYDRATE) [Suspect]
     Active Substance: AMITRIPTYLINE HYDROCHLORIDE
     Indication: DEPRESSION
     Dosage: 25 MG, QD
     Dates: start: 201410
  3. VENLAFAXINE [Concomitant]
     Active Substance: VENLAFAXINE HYDROCHLORIDE
     Indication: DEPRESSION
     Dosage: 150 MG, BID
     Dates: start: 201109
  4. ALZEN? [Concomitant]
     Indication: DEPRESSION
  5. LENDORMIN [Concomitant]
     Active Substance: BROTIZOLAM
     Indication: DEPRESSION
     Dosage: UNK
     Dates: start: 201109
  6. IDEBENONE [Suspect]
     Active Substance: IDEBENONE
     Indication: DEPRESSION
     Dosage: 45 MG, BID
     Route: 048
     Dates: start: 201410
  7. LAMOTRIGINA [Concomitant]
     Active Substance: LAMOTRIGINE
     Indication: DEPRESSION
     Dosage: UNK
     Dates: start: 201109
  8. BROMALEX [Concomitant]
     Indication: DEPRESSION

REACTIONS (2)
  - Constipation [Unknown]
  - Dysuria [Unknown]

NARRATIVE: CASE EVENT DATE: 201501
